FAERS Safety Report 21355709 (Version 1)
Quarter: 2022Q3

REPORT INFORMATION
  Report Type: Spontaneous
  Country: US (occurrence: US)
  Receive Date: 20220920
  Receipt Date: 20220920
  Transmission Date: 20221027
  Serious: No
  Sender: FDA-Public Use
  Company Number: US-THERAPEUTICSMD-2022TMD00406

PATIENT
  Age: 34 Year
  Sex: Female
  Weight: 64.853 kg

DRUGS (6)
  1. ANNOVERA [Suspect]
     Active Substance: ETHINYL ESTRADIOL\SEGESTERONE ACETATE
     Indication: Contraception
     Dosage: 1 VAGINAL RING, INSERT FOR 3 WEEKS, REMOVE FOR 1 WEEK AND REPEAT CYCLE
     Route: 067
     Dates: start: 2020, end: 2021
  2. ANNOVERA [Suspect]
     Active Substance: ETHINYL ESTRADIOL\SEGESTERONE ACETATE
     Dosage: 1 VAGINAL RING, INSERT FOR 3 WEEKS, REMOVE FOR 1 WEEK AND REPEAT CYCLE
     Route: 067
     Dates: start: 202109
  3. UNSPECIFIED GREEN SUPPLEMENT [Concomitant]
  4. GINKGO [Concomitant]
     Active Substance: GINKGO
  5. COLLAGEN [Concomitant]
     Active Substance: COLLAGEN
  6. VITAMINS [Concomitant]
     Active Substance: VITAMINS

REACTIONS (3)
  - Heavy menstrual bleeding [Recovered/Resolved]
  - Menstrual disorder [Recovered/Resolved]
  - Intermenstrual bleeding [Recovered/Resolved]

NARRATIVE: CASE EVENT DATE: 20220412
